FAERS Safety Report 5988494-1 (Version None)
Quarter: 2008Q4

REPORT INFORMATION
  Report Type: 
  Country: None (occurrence: None)
  Receive Date: 20081208
  Receipt Date: 20081208
  Transmission Date: 20090506
  Serious: Yes (Hospitalization)
  Sender: FDA-Public Use
  Company Number: None

PATIENT
  Age: 27 Year
  Sex: Female
  Weight: 133.8111 kg

DRUGS (2)
  1. YAZ [Suspect]
     Indication: CONTRACEPTION
     Dosage: 1 PILL ONCE A DAY PO
     Route: 048
     Dates: start: 20081116, end: 20081201
  2. YAZ [Suspect]
     Indication: POLYCYSTIC OVARIES
     Dosage: 1 PILL ONCE A DAY PO
     Route: 048
     Dates: start: 20081116, end: 20081201

REACTIONS (2)
  - ABASIA [None]
  - DIZZINESS [None]
